FAERS Safety Report 17283979 (Version 1)
Quarter: 2020Q1

REPORT INFORMATION
  Report Type: Report from Study
  Country: US (occurrence: US)
  Receive Date: 20200117
  Receipt Date: 20200117
  Transmission Date: 20200409
  Serious: Yes (Other)
  Sender: FDA-Public Use
  Company Number: US-PFIZER INC-2020018252

PATIENT

DRUGS (5)
  1. GEMTUZUMAB OZOGAMICIN [Suspect]
     Active Substance: GEMTUZUMAB OZOGAMICIN
     Dosage: 3 MG/M2, CYCLIC (ON DAYS 1, 4, AND 7)
  2. CLADRIBINE. [Suspect]
     Active Substance: CLADRIBINE
     Dosage: 5 MG/M2/DAY, DAYS 1-5
  3. CYTARABINE. [Suspect]
     Active Substance: CYTARABINE
     Dosage: 2G/M2/DAY (DAYS 1-5)
  4. MITOXANTRONE HCL [Suspect]
     Active Substance: MITOXANTRONE HYDROCHLORIDE
     Dosage: 18 MG/M2/DAY, DAYS 1-3
  5. G-CSF [Suspect]
     Active Substance: GRANULOCYTE COLONY-STIMULATING FACTOR NOS
     Dosage: 300 OR 480 MUG/DAY (FOR WEIGHT {76 KG VS. }=76 KG; DAYS 0- 5)

REACTIONS (1)
  - Posterior reversible encephalopathy syndrome [Unknown]
